FAERS Safety Report 6527590-7 (Version None)
Quarter: 2010Q1

REPORT INFORMATION
  Report Type: 
  Country: None (occurrence: None)
  Receive Date: 20100105
  Receipt Date: 20091222
  Transmission Date: 20100710
  Serious: Yes (Other)
  Sender: FDA-Public Use
  Company Number: PHHY2009FR58376

PATIENT
  Sex: Female

DRUGS (3)
  1. TEGRETOL [Suspect]
     Indication: TRIGEMINAL NEURALGIA
     Dosage: 200 MG, BID
     Dates: start: 20091013, end: 20091019
  2. TEGRETOL [Suspect]
     Dosage: 2 DF, BID
     Dates: start: 20091020, end: 20091021
  3. TEGRETOL [Suspect]
     Dosage: 200 MG, BID
     Dates: start: 20091022, end: 20091023

REACTIONS (13)
  - ACCOMMODATION DISORDER [None]
  - DIZZINESS [None]
  - DRY MOUTH [None]
  - ERYTHEMA [None]
  - FACE OEDEMA [None]
  - LEUKOPENIA [None]
  - LIVER FUNCTION TEST ABNORMAL [None]
  - NAUSEA [None]
  - PARAESTHESIA [None]
  - PYREXIA [None]
  - RED BLOOD CELL SEDIMENTATION RATE INCREASED [None]
  - SOMNOLENCE [None]
  - THROMBOCYTOPENIA [None]
